FAERS Safety Report 6114859-3 (Version None)
Quarter: 2009Q1

REPORT INFORMATION
  Report Type: 
  Country: None (occurrence: None)
  Receive Date: 20090313
  Receipt Date: 20090302
  Transmission Date: 20090719
  Serious: Yes (Hospitalization, Other)
  Sender: FDA-Public Use
  Company Number: GB-ELI_LILLY_AND_COMPANY-GB200903000662

PATIENT
  Age: 72 Year
  Sex: Female

DRUGS (2)
  1. CYMBALTA [Suspect]
     Dosage: 30 MG, UNKNOWN
     Route: 065
  2. ANTIDEPRESSANTS [Concomitant]

REACTIONS (4)
  - CONVULSION [None]
  - HALLUCINATION, VISUAL [None]
  - HOSPITALISATION [None]
  - URINARY TRACT INFECTION [None]
